FAERS Safety Report 23775097 (Version 3)
Quarter: 2025Q1

REPORT INFORMATION
  Report Type: Spontaneous
  Country: IT (occurrence: IT)
  Receive Date: 20240423
  Receipt Date: 20250227
  Transmission Date: 20250409
  Serious: Yes (Other)
  Sender: NOVARTIS
  Company Number: None

PATIENT
  Age: 47 Year
  Sex: Female

DRUGS (2)
  1. IMATINIB [Suspect]
     Active Substance: IMATINIB
     Indication: Chronic myeloid leukaemia
     Dosage: 400 MG, Q24H (4 CPR DA 100MG DIE IN UN UNICA SOMMINISTRAZIONE ( PRANZO))
     Route: 048
     Dates: start: 2009, end: 20240329
  2. LASIX [Concomitant]
     Active Substance: FUROSEMIDE
     Indication: Fluid retention
     Route: 048
     Dates: start: 2009, end: 202402

REACTIONS (2)
  - Oral pigmentation [Not Recovered/Not Resolved]
  - Palatal disorder [Not Recovered/Not Resolved]

NARRATIVE: CASE EVENT DATE: 20230101
